FAERS Safety Report 6264500-4 (Version None)
Quarter: 2009Q3

REPORT INFORMATION
  Report Type: 
  Country: None (occurrence: None)
  Receive Date: 20090709
  Receipt Date: 20081010
  Transmission Date: 20100115
  Serious: Yes (Death)
  Sender: FDA-Public Use
  Company Number: DSU-2008-01600

PATIENT
  Age: 80 Year
  Sex: Male

DRUGS (3)
  1. OLMESARTAN MEDOXOMIL [Suspect]
     Indication: FLUID RETENTION
     Dates: start: 20080101
  2. OLMETEC HCT (HYDROCHLOROTHIAZIIDE, OLMESARTAN MEDOXOMIL) (TABLET) (HYD [Suspect]
     Indication: FLUID RETENTION
     Dosage: PER ORAL
     Route: 048
     Dates: start: 20080101
  3. OLMETEC HCT (HYDROCHLOROTHIAZIIDE, OLMESARTAN MEDOXOMIL) (TABLET) (HYD [Suspect]
     Indication: HYPERTENSION
     Dosage: PER ORAL
     Route: 048
     Dates: start: 20080101

REACTIONS (3)
  - BLOOD PRESSURE INCREASED [None]
  - MYOCARDIAL INFARCTION [None]
  - TREATMENT NONCOMPLIANCE [None]
